FAERS Safety Report 19052897 (Version 1)
Quarter: 2021Q1

REPORT INFORMATION
  Report Type: Spontaneous
  Country: US (occurrence: US)
  Receive Date: 20210324
  Receipt Date: 20210324
  Transmission Date: 20210420
  Serious: Yes (Other)
  Sender: FDA-Public Use
  Company Number: US-AMERICAN REGENT INC-2021000726

PATIENT
  Age: 64 Year
  Sex: Female

DRUGS (4)
  1. ATROPINE SULFATE INJECTION, USP (0101?25) [Suspect]
     Active Substance: ATROPINE SULFATE
     Dosage: 2 MILLIGRAM, SINGLE
     Route: 042
  2. PILOCARPINE HYDROCHLORIDE. [Concomitant]
     Active Substance: PILOCARPINE HYDROCHLORIDE
     Indication: DRY MOUTH
     Dosage: UNK
     Route: 048
  3. ATROPINE SULFATE INJECTION, USP (0101?25) [Suspect]
     Active Substance: ATROPINE SULFATE
     Indication: CHOLINERGIC SYNDROME
     Dosage: 0.5 MILLIGRAM (LOW DOSE)
     Route: 042
  4. PILOCARPINE HYDROCHLORIDE. [Concomitant]
     Active Substance: PILOCARPINE HYDROCHLORIDE
     Dosage: #60 5MG TABLETS, ONCE
     Route: 048

REACTIONS (1)
  - Drug ineffective [Recovered/Resolved]
